FAERS Safety Report 4536474-5 (Version None)
Quarter: 2004Q4

REPORT INFORMATION
  Report Type: 
  Country: None (occurrence: None)
  Receive Date: 20041220
  Receipt Date: 20041209
  Transmission Date: 20050328
  Serious: Yes (Other)
  Sender: FDA-Public Use
  Company Number: S04-USA-07738-01

PATIENT
  Age: 81 Year
  Sex: Female

DRUGS (11)
  1. NAMENDA [Suspect]
     Indication: DEMENTIA
     Dosage: 5 MG QD PO
     Route: 048
     Dates: start: 20041130, end: 20041206
  2. NAMENDA [Suspect]
     Indication: DEMENTIA
     Dosage: 5 MG BID PO
     Route: 048
     Dates: start: 20041207
  3. ARICEPT [Concomitant]
  4. CELEBREX [Concomitant]
  5. LEVOXYL [Concomitant]
  6. MIRTAZAPINE [Concomitant]
  7. NEURONTIN [Concomitant]
  8. NORVASC [Concomitant]
  9. SEROQUEL [Concomitant]
  10. TRAMADOL HCL [Concomitant]
  11. TYLENOL [Concomitant]

REACTIONS (2)
  - DEEP VEIN THROMBOSIS [None]
  - DIZZINESS [None]
